FAERS Safety Report 4498856-X (Version None)
Quarter: 2004Q4

REPORT INFORMATION
  Report Type: 
  Country: None (occurrence: None)
  Receive Date: 20041108
  Receipt Date: 20041029
  Transmission Date: 20050328
  Serious: Yes (Death)
  Sender: FDA-Public Use
  Company Number: F01200403407

PATIENT
  Age: 76 Year
  Sex: Male

DRUGS (1)
  1. (LEUPROLIDE ACETATE) - SUSPENSION - 22.5 MG [Suspect]
     Indication: PROSTATE CANCER
     Dosage: 22.5 MG Q3M
     Route: 058
     Dates: start: 20040609, end: 20040101

REACTIONS (1)
  - DEATH [None]
